FAERS Safety Report 9508037 (Version 1)
Quarter: 2013Q1

REPORT INFORMATION
  Report Type: Spontaneous
  Country: US (occurrence: None)
  Receive Date: 20130305
  Receipt Date: 20130305
  Transmission Date: 20140127
  Serious: Yes (Life-Threatening, Hospitalization)
  Sender: FDA-Public Use
  Company Number: 163-21880-12032867

PATIENT
  Age: 92 Year
  Sex: Female
  Weight: 86.18 kg

DRUGS (15)
  1. REVLIMID [Suspect]
     Indication: MYELODYSPLASTIC SYNDROME
     Dosage: MWF X3WKS, 1 WK OFF
     Route: 048
     Dates: start: 200605
  2. CALCIUM WITH VITAMIN D (CALCIUM WITH VITAMIN D) [Concomitant]
  3. DIOVAN (VALSARTAN) [Concomitant]
  4. NORVASC (AMLODIPINE BESILATE) [Concomitant]
  5. POTASSIUM (POTASSIUM) [Concomitant]
  6. FOSAMX (ALENDRONATE SODIUM) [Concomitant]
  7. COUMADIN (WARFARIN SODIUM) [Concomitant]
  8. VITAMIN D (ERGOCALCIFEROL) [Concomitant]
  9. AMLODIPINE (AMLODIPINE) [Concomitant]
  10. LEVOTHYROXINE (LEVOTHYROXINE) [Concomitant]
  11. OS-CAL [Concomitant]
  12. ARTIFICIAL TEARS (ARTIFICIAL TEARS) [Concomitant]
  13. TYLENOL (PARACETAMOL) [Concomitant]
  14. GUAIFENESIN (GUAIFENESIN) [Concomitant]
  15. VICODIN [Concomitant]

REACTIONS (3)
  - Confusional state [None]
  - Fall [None]
  - Haemoglobin decreased [None]
